FAERS Safety Report 8138383-1 (Version None)
Quarter: 2012Q1

REPORT INFORMATION
  Report Type: 
  Country: None (occurrence: None)
  Receive Date: 20120215
  Receipt Date: 20120206
  Transmission Date: 20120608
  Serious: Yes (Disabling)
  Sender: FDA-Public Use
  Company Number: AU-EISAI INC-E3810-05292-SPO-AU

PATIENT
  Sex: Male
  Weight: 90 kg

DRUGS (1)
  1. RABEPRAZOLE SODIUM [Suspect]
     Route: 048
     Dates: start: 20091120, end: 20100211

REACTIONS (3)
  - DEPRESSION [None]
  - AGGRESSION [None]
  - ANXIETY [None]
